FAERS Safety Report 23682961 (Version 1)
Quarter: 2024Q1

REPORT INFORMATION
  Report Type: Spontaneous
  Country: US (occurrence: US)
  Receive Date: 20240328
  Receipt Date: 20240328
  Transmission Date: 20240409
  Serious: No
  Sender: FDA-Public Use
  Company Number: US-Calliditas-2024CAL00477

PATIENT
  Age: 65 Year
  Sex: Female

DRUGS (2)
  1. TARPEYO [Suspect]
     Active Substance: BUDESONIDE
     Indication: IgA nephropathy
     Dosage: 16MG (4MG CAPSULES) ONCE DAILY
     Route: 048
     Dates: start: 20220208
  2. LINZESS [Suspect]
     Active Substance: LINACLOTIDE

REACTIONS (5)
  - Dehydration [Unknown]
  - Abdominal pain [Unknown]
  - Smear cervix abnormal [Unknown]
  - Scar [Unknown]
  - Glomerular filtration rate increased [Unknown]
